FAERS Safety Report 20709330 (Version 1)
Quarter: 2022Q2

REPORT INFORMATION
  Report Type: Spontaneous
  Country: US (occurrence: None)
  Receive Date: 20220413
  Receipt Date: 20220413
  Transmission Date: 20220720
  Serious: Yes (unspecified)
  Sender: FDA-Public Use
  Company Number: None

PATIENT
  Age: 53 Year
  Sex: Female

DRUGS (1)
  1. MEKINIST [Suspect]
     Active Substance: TRAMETINIB DIMETHYL SULFOXIDE
     Dosage: FREQUENCY : DAILY;?
     Route: 048
     Dates: start: 202105

REACTIONS (5)
  - Blindness [None]
  - Hot flush [None]
  - Night sweats [None]
  - Eye oedema [None]
  - Therapy interrupted [None]

NARRATIVE: CASE EVENT DATE: 20220101
